FAERS Safety Report 17911507 (Version 2)
Quarter: 2020Q2

REPORT INFORMATION
  Report Type: Spontaneous
  Country: JP (occurrence: JP)
  Receive Date: 20200618
  Receipt Date: 20200626
  Transmission Date: 20200714
  Serious: Yes (Hospitalization)
  Sender: FDA-Public Use
  Company Number: JP-TEVA-2020-JP-1790801

PATIENT
  Age: 76 Year
  Sex: Female

DRUGS (11)
  1. AZILECT [Suspect]
     Active Substance: RASAGILINE MESYLATE
     Indication: PARKINSON^S DISEASE
     Dosage: 1 MILLIGRAM DAILY;
     Route: 048
  2. AZILVA TABLETS 20MG [Suspect]
     Active Substance: AZILSARTAN KAMEDOXOMIL
     Indication: HYPERTENSION
     Dosage: 20 MILLIGRAM DAILY;
     Route: 048
  3. COMTAN [Concomitant]
     Active Substance: ENTACAPONE
  4. FORTEO [Concomitant]
     Active Substance: TERIPARATIDE
  5. BELSOMRA [Concomitant]
     Active Substance: SUVOREXANT
  6. CARCOPA [Concomitant]
     Active Substance: CARBIDOPA\LEVODOPA
  7. AMLODIPINE [Concomitant]
     Active Substance: AMLODIPINE BESYLATE
  8. REBAMIPIDE [Concomitant]
     Active Substance: REBAMIPIDE
  9. MAGMITT [Concomitant]
     Active Substance: MAGNESIUM OXIDE
  10. CABERGOLINE. [Concomitant]
     Active Substance: CABERGOLINE
  11. ATORVASTATIN [Concomitant]
     Active Substance: ATORVASTATIN

REACTIONS (1)
  - Compression fracture [Unknown]
